FAERS Safety Report 9445937 (Version 6)
Quarter: 2013Q4

REPORT INFORMATION
  Report Type: Report from Study
  Country: US (occurrence: US)
  Receive Date: 20130807
  Receipt Date: 20131003
  Transmission Date: 20140711
  Serious: Yes (Hospitalization, Other)
  Sender: FDA-Public Use
  Company Number: US-UCBSA-094579

PATIENT
  Age: 69 Year
  Sex: Female
  Weight: 38.01 kg

DRUGS (18)
  1. CIMZIA [Suspect]
     Indication: CROHN^S DISEASE
     Route: 058
     Dates: start: 20130102, end: 2013
  2. ULTRAM [Concomitant]
     Dosage: 50 MG 1 PER DAY
  3. SYNTHROID [Concomitant]
  4. CYANOCOBALAMIN [Concomitant]
     Dosage: 1000 MCG/ML. 1 INJECTION PER WEEK
     Route: 030
  5. FERROUS SULFATE [Concomitant]
     Dosage: 325 MG. 2 TAB
  6. POTASSIUM CHLORIDE [Concomitant]
     Dosage: ER 20 MEQ
  7. CHOLECALCIFEROL [Concomitant]
     Dosage: 2000 ONE UNIT ONE CAPSULE
  8. BUDESONIDE [Concomitant]
     Dosage: DR AND ER
  9. LOPERAMIDE [Concomitant]
     Dosage: 2 MG
  10. CALCIUM [Concomitant]
     Dosage: 250-125 MG-3.7MG-100 UNIT 3 TAB
  11. LACTOBACILLUS ACIDOPHILUS [Concomitant]
  12. MIRTAZAPINE [Concomitant]
     Dosage: 1/5 . BEDTIME
  13. K-PHOS-NEUTRAL [Concomitant]
     Dosage: 250MG
  14. OMEPRAZOLE [Concomitant]
     Dosage: 20 MG
  15. SODIUM BICARBONATE [Concomitant]
     Dosage: 325 MG. 3 TAB PER DAY
  16. ALIGN [Concomitant]
     Dosage: 4 MG
  17. BUDESONIDE [Concomitant]
     Dates: start: 201304
  18. MINOCYCLINE [Concomitant]
     Dates: start: 201304, end: 201305

REACTIONS (1)
  - Pneumonia [Recovered/Resolved]
